FAERS Safety Report 4414230-6 (Version None)
Quarter: 2004Q3

REPORT INFORMATION
  Report Type: 
  Country: None (occurrence: None)
  Receive Date: 20040728
  Receipt Date: 20040720
  Transmission Date: 20050211
  Serious: Yes (Hospitalization)
  Sender: FDA-Public Use
  Company Number: 2003-107789-NL

PATIENT
  Age: 42 Year
  Sex: Female

DRUGS (3)
  1. MIRTAZAPINE [Suspect]
     Indication: DEPRESSION
     Dosage: 30 MG
     Route: 048
     Dates: start: 20021126, end: 20030201
  2. ZOPICLONE [Concomitant]
  3. LORAZEPAM [Concomitant]

REACTIONS (2)
  - HEPATITIS [None]
  - JAUNDICE [None]
